FAERS Safety Report 15344889 (Version 1)
Quarter: 2018Q3

REPORT INFORMATION
  Report Type: Spontaneous
  Country: US (occurrence: US)
  Receive Date: 20180903
  Receipt Date: 20180903
  Transmission Date: 20181010
  Serious: Yes (Other)
  Sender: FDA-Public Use
  Company Number: US-SA-2018SA002347

PATIENT
  Age: 69 Year
  Sex: Female
  Weight: 64 kg

DRUGS (4)
  1. TAXOTERE [Suspect]
     Active Substance: DOCETAXEL
     Dosage: 79.2 MG
     Route: 042
     Dates: start: 20130506, end: 20130506
  2. TAXOTERE [Suspect]
     Active Substance: DOCETAXEL
     Dosage: 132 MG, Q3W
     Route: 042
     Dates: start: 20130829, end: 20130829
  3. CARBOPLATIN. [Concomitant]
     Active Substance: CARBOPLATIN
  4. TRASTUZUMAB. [Concomitant]
     Active Substance: TRASTUZUMAB

REACTIONS (2)
  - Psychological trauma [Unknown]
  - Alopecia [Recovering/Resolving]

NARRATIVE: CASE EVENT DATE: 20130601
